FAERS Safety Report 23536785 (Version 1)
Quarter: 2024Q1

REPORT INFORMATION
  Report Type: Report from Study
  Country: IT (occurrence: IT)
  Receive Date: 20240219
  Receipt Date: 20240219
  Transmission Date: 20240409
  Serious: Yes (Other)
  Sender: FDA-Public Use
  Company Number: None

PATIENT

DRUGS (9)
  1. PEGASPARGASE [Suspect]
     Active Substance: PEGASPARGASE
     Indication: B-cell type acute leukaemia
     Dosage: 1550 U
     Route: 042
     Dates: start: 20240115, end: 20240115
  2. DAUNORUBICIN HYDROCHLORIDE [Suspect]
     Active Substance: DAUNORUBICIN HYDROCHLORIDE
     Indication: B-cell type acute leukaemia
     Dosage: 18.5 MG, QD
     Route: 042
     Dates: start: 20240111, end: 20240111
  3. DAUNORUBICIN HYDROCHLORIDE [Suspect]
     Active Substance: DAUNORUBICIN HYDROCHLORIDE
     Dosage: 18.5 MG, QD
     Route: 042
     Dates: start: 20240118, end: 20240118
  4. DAUNORUBICIN HYDROCHLORIDE [Suspect]
     Active Substance: DAUNORUBICIN HYDROCHLORIDE
     Dosage: 18.5 MG, QD
     Route: 042
     Dates: start: 20240125, end: 20240125
  5. PREDNISONE [Concomitant]
     Active Substance: PREDNISONE
     Indication: B-cell type acute leukaemia
     Dosage: 12.5 MG, TID
     Route: 048
     Dates: start: 20240118
  6. VINCRISTINE [Concomitant]
     Active Substance: VINCRISTINE
     Indication: B-cell type acute leukaemia
     Dosage: 0.9 MG
     Route: 042
     Dates: start: 20240111, end: 20240111
  7. VINCRISTINE [Concomitant]
     Active Substance: VINCRISTINE
     Dosage: 0.9 MG
     Route: 042
     Dates: start: 20240118, end: 20240118
  8. CEFTRIAXONE [Concomitant]
     Active Substance: CEFTRIAXONE\CEFTRIAXONE SODIUM
     Indication: Antibiotic prophylaxis
     Dosage: 460 MG, QD
     Route: 042
     Dates: start: 20240112, end: 20240130
  9. AMIKACIN SULFATE [Concomitant]
     Active Substance: AMIKACIN SULFATE
     Indication: Antibiotic prophylaxis
     Dosage: 280 MG, QD
     Route: 042
     Dates: start: 20240116, end: 20240118

REACTIONS (1)
  - Stomatitis [Not Recovered/Not Resolved]

NARRATIVE: CASE EVENT DATE: 20240118
